FAERS Safety Report 5131417-8 (Version None)
Quarter: 2006Q4

REPORT INFORMATION
  Report Type: 
  Country: None (occurrence: None)
  Receive Date: 20061020
  Receipt Date: 20060911
  Transmission Date: 20070319
  Serious: Yes (Other)
  Sender: FDA-Public Use
  Company Number: NL-GLAXOSMITHKLINE-B0437949A

PATIENT
  Age: 71 Year
  Sex: Female

DRUGS (5)
  1. ROSIGLITAZONE MALEATE [Suspect]
     Dosage: 4MG PER DAY
     Dates: start: 20010904, end: 20060816
  2. SYNAPAUSE [Suspect]
     Dosage: .5MG UNKNOWN
     Route: 065
     Dates: start: 20060316
  3. GLIMEPIRIDE [Concomitant]
     Dosage: 2MG PER DAY
     Dates: start: 20010904
  4. COAPROVEL [Concomitant]
     Route: 065
     Dates: start: 20060620
  5. LIPITOR [Concomitant]
     Dates: start: 20060816

REACTIONS (5)
  - BLOOD PRESSURE INCREASED [None]
  - FLUID RETENTION [None]
  - HEPATIC FUNCTION ABNORMAL [None]
  - HEPATOCELLULAR DAMAGE [None]
  - OEDEMA [None]
